FAERS Safety Report 6389336-5 (Version None)
Quarter: 2009Q4

REPORT INFORMATION
  Report Type: 
  Country: None (occurrence: None)
  Receive Date: 20091003
  Receipt Date: 20090921
  Transmission Date: 20100525
  Serious: Yes (Hospitalization)
  Sender: FDA-Public Use
  Company Number: CLOF-1000705

PATIENT
  Sex: Female

DRUGS (1)
  1. CLOFARABINE (CLOFARABINE) TABLET [Suspect]
     Indication: MYELODYSPLASTIC SYNDROME
     Dosage: 20 MG, QD, ORAL
     Route: 048
     Dates: start: 20090829, end: 20090901

REACTIONS (1)
  - CHEST PAIN [None]
